FAERS Safety Report 11031868 (Version 1)
Quarter: 2015Q2

REPORT INFORMATION
  Report Type: Spontaneous
  Country: US (occurrence: None)
  Receive Date: 20150414
  Receipt Date: 20150414
  Transmission Date: 20150821
  Serious: Yes (Other)
  Sender: FDA-Public Use
  Company Number: None

PATIENT
  Age: 5 Year
  Sex: Male
  Weight: 18.6 kg

DRUGS (4)
  1. NASACOURT [Concomitant]
  2. LEVOCETIRIZINE [Concomitant]
     Active Substance: LEVOCETIRIZINE
  3. CHILDREN^S CHEWABLE VITAMINS [Concomitant]
  4. DEXMETHYLPHENIDATE HYDROCHLORIDE EXTENDED-RELEASE [Suspect]
     Active Substance: DEXMETHYLPHENIDATE HYDROCHLORIDE
     Indication: ATTENTION DEFICIT/HYPERACTIVITY DISORDER
     Dosage: 1 CAPSULE
     Route: 048
     Dates: start: 20150401, end: 20150410

REACTIONS (9)
  - Mydriasis [None]
  - Product lot number issue [None]
  - Tachycardia [None]
  - Aggression [None]
  - Anxiety [None]
  - Disturbance in attention [None]
  - Enuresis [None]
  - Abnormal behaviour [None]
  - Decreased appetite [None]

NARRATIVE: CASE EVENT DATE: 20150410
